FAERS Safety Report 4522813-8 (Version None)
Quarter: 2004Q4

REPORT INFORMATION
  Report Type: 
  Country: None (occurrence: None)
  Receive Date: 20041209
  Receipt Date: 20030605
  Transmission Date: 20050328
  Serious: Yes (Hospitalization, Other)
  Sender: FDA-Public Use
  Company Number: US-MERCK-0306USA00835

PATIENT
  Age: 49 Year
  Sex: Male
  Weight: 64 kg

DRUGS (6)
  1. VIOXX [Suspect]
     Indication: ARTHRITIS
     Route: 048
     Dates: start: 19991004, end: 20041001
  2. DARVOCET-N 100 [Concomitant]
     Route: 065
  3. SOMA [Concomitant]
     Route: 048
     Dates: start: 20030606
  4. SOMA [Concomitant]
     Route: 065
     Dates: end: 20030605
  5. ELAVIL [Concomitant]
     Route: 065
  6. ANALGESIC OR ANESTHETIC (UNSPECIFIED) [Concomitant]
     Route: 065

REACTIONS (11)
  - ARTHRALGIA [None]
  - BLUE TOE SYNDROME [None]
  - CELLULITIS PHARYNGEAL [None]
  - CHEST PAIN [None]
  - CORONARY ARTERY DISEASE [None]
  - FALL [None]
  - FIBULA FRACTURE [None]
  - INTERMITTENT CLAUDICATION [None]
  - MYOCARDIAL INFARCTION [None]
  - TARSAL TUNNEL SYNDROME [None]
  - THERAPEUTIC RESPONSE DECREASED [None]
